FAERS Safety Report 8506157-5 (Version None)
Quarter: 2012Q3

REPORT INFORMATION
  Report Type: 
  Country: None (occurrence: None)
  Receive Date: 20120712
  Receipt Date: 20120709
  Transmission Date: 20120928
  Serious: Yes (Hospitalization)
  Sender: FDA-Public Use
  Company Number: PHFR2012GB003924

PATIENT
  Sex: Male

DRUGS (5)
  1. CLOZARIL [Suspect]
  2. ZUCLOPENTHIXOL [Concomitant]
  3. DEPOT [Concomitant]
  4. CLOZARIL [Suspect]
     Indication: SCHIZOPHRENIA
     Dates: start: 20041217, end: 20061201
  5. RISPERIDONE [Concomitant]
     Dosage: 6 MG, DAILY

REACTIONS (4)
  - PSORIASIS [None]
  - OEDEMA PERIPHERAL [None]
  - MENTAL IMPAIRMENT [None]
  - BLOOD TEST ABNORMAL [None]
